FAERS Safety Report 6941335-8 (Version None)
Quarter: 2010Q3

REPORT INFORMATION
  Report Type: 
  Country: None (occurrence: None)
  Receive Date: 20100825
  Receipt Date: 20100817
  Transmission Date: 20110219
  Serious: Yes (Other)
  Sender: FDA-Public Use
  Company Number: US-ABBOTT-10P-163-0664074-00

PATIENT
  Sex: Female
  Weight: 50.848 kg

DRUGS (14)
  1. HUMIRA [Suspect]
     Indication: CROHN'S DISEASE
     Route: 050
     Dates: start: 20090923, end: 20100514
  2. MULTI-VITAMIN [Concomitant]
     Indication: PRODUCT USED FOR UNKNOWN INDICATION
     Route: 048
     Dates: start: 20091101, end: 20100607
  3. FOLIC ACID [Concomitant]
     Indication: CROHN'S DISEASE
     Route: 048
     Dates: start: 20090923, end: 20100607
  4. ASCORBIC ACID [Concomitant]
     Indication: PRODUCT USED FOR UNKNOWN INDICATION
     Route: 048
     Dates: start: 20100412, end: 20100607
  5. ORAL CONTRACEPTIVE NOS [Concomitant]
     Indication: ORAL CONTRACEPTION
     Dates: start: 20091201, end: 20091231
  6. DICYCLOMINE [Concomitant]
     Indication: GASTROINTESTINAL PAIN
     Route: 048
     Dates: start: 20090923, end: 20100607
  7. TRAMADOL HCL [Concomitant]
     Indication: ARTHRALGIA
     Route: 048
     Dates: start: 20091231, end: 20100607
  8. ERYTHROMYCIN [Concomitant]
     Indication: UPPER RESPIRATORY TRACT INFECTION
     Dosage: 10 TOTAL
     Route: 048
     Dates: start: 20091201, end: 20091231
  9. ERYTHROMYCIN [Concomitant]
     Indication: FISTULA
     Route: 048
     Dates: start: 20100514, end: 20100607
  10. H1N1 2009 INFLUENZA VACCINE [Concomitant]
     Indication: INFLUENZA IMMUNISATION
     Dosage: 1 TOTAL
     Route: 050
     Dates: start: 20091107, end: 20091121
  11. INFLUENZA VACCINE [Concomitant]
     Indication: INFLUENZA IMMUNISATION
     Dosage: 1 TOTAL
     Route: 050
     Dates: start: 20091001, end: 20091014
  12. AFRIN [Concomitant]
     Indication: RHINITIS ALLERGIC
     Route: 045
     Dates: start: 20100301, end: 20100607
  13. CLARITIN [Concomitant]
     Indication: HYPERSENSITIVITY
     Route: 048
     Dates: start: 20100412, end: 20100607
  14. ACETAMINOPHEN [Concomitant]
     Indication: HEADACHE
     Dosage: 10 TOTAL
     Route: 048
     Dates: start: 20090923, end: 20100426

REACTIONS (3)
  - DRUG EXPOSURE DURING PREGNANCY [None]
  - GASTROINTESTINAL FISTULA [None]
  - PREMATURE LABOUR [None]
